FAERS Safety Report 5411601-6 (Version None)
Quarter: 2007Q3

REPORT INFORMATION
  Report Type: 
  Country: None (occurrence: None)
  Receive Date: 20070810
  Receipt Date: 20070803
  Transmission Date: 20080115
  Serious: Yes (Life-Threatening, Hospitalization)
  Sender: FDA-Public Use
  Company Number: NL-PFIZER INC-2007055473

PATIENT
  Sex: Female
  Weight: 72 kg

DRUGS (8)
  1. CELECOXIB [Suspect]
     Indication: OVARIAN CANCER
     Route: 048
     Dates: start: 20061219, end: 20070628
  2. CARBOPLATIN [Suspect]
     Indication: OVARIAN CANCER
     Dates: start: 20061219, end: 20070628
  3. DOCETAXEL [Suspect]
     Indication: OVARIAN CANCER
     Dates: start: 20061219, end: 20070628
  4. AVELOX [Concomitant]
  5. NEXIUM [Concomitant]
  6. DEXAMETHASONE 0.5MG TAB [Concomitant]
  7. METOCLOPRAMIDE [Concomitant]
  8. DICLOFENAC [Concomitant]

REACTIONS (1)
  - NECROTISING FASCIITIS [None]
